FAERS Safety Report 13858991 (Version 1)
Quarter: 2017Q3

REPORT INFORMATION
  Report Type: Spontaneous
  Country: US (occurrence: US)
  Receive Date: 20170811
  Receipt Date: 20170811
  Transmission Date: 20171127
  Serious: No
  Sender: FDA-Public Use
  Company Number: US-PERRIGO-16US022404

PATIENT
  Sex: Male
  Weight: 45.35 kg

DRUGS (2)
  1. LORATADINE. [Suspect]
     Active Substance: LORATADINE
     Indication: VIRAL UPPER RESPIRATORY TRACT INFECTION
     Dosage: 20 MG, SINGLE
     Route: 048
     Dates: start: 20161201, end: 20161201
  2. LORATADINE. [Suspect]
     Active Substance: LORATADINE
     Indication: UPPER RESPIRATORY TRACT CONGESTION
     Dosage: 10 MG, QD, PRN
     Route: 048

REACTIONS (1)
  - Off label use [Not Recovered/Not Resolved]
